FAERS Safety Report 14448918 (Version 1)
Quarter: 2018Q1

REPORT INFORMATION
  Report Type: Report from Study
  Country: DE (occurrence: DE)
  Receive Date: 20180126
  Receipt Date: 20180126
  Transmission Date: 20180509
  Serious: Yes (Other)
  Sender: FDA-Public Use
  Company Number: DE-BAXTER-2018BAX002849

PATIENT
  Age: 64 Year
  Sex: Female
  Weight: 61 kg

DRUGS (3)
  1. ISOFLURAN BAXTER [Suspect]
     Active Substance: ISOFLURANE
     Indication: INDUCTION OF ANAESTHESIA
     Route: 055
     Dates: start: 20170612, end: 20170612
  2. AKRINOR [Suspect]
     Active Substance: CAFEDRINE HYDROCHLORIDE\THEODRENALINE
     Dosage: 2 ML SOLUTION FOR INJECTION CONTAINS 200 MG CAFEDRINHYDROCHLORID AND 10 MG THEODRENALINHYDROCHLORID;
     Route: 065
  3. AKRINOR [Suspect]
     Active Substance: CAFEDRINE HYDROCHLORIDE\THEODRENALINE
     Indication: PROCEDURAL HYPOTENSION
     Dosage: 2 ML SOLUTION FOR INJECTION CONTAINS 200 MG CAFEDRINHYDROCHLORID AND 10 MG THEODRENALINHYDROCHLORID
     Route: 065

REACTIONS (1)
  - Bradycardia [Recovered/Resolved]

NARRATIVE: CASE EVENT DATE: 20170612
